FAERS Safety Report 12960264 (Version 1)
Quarter: 2016Q4

REPORT INFORMATION
  Report Type: Spontaneous
  Country: US (occurrence: None)
  Receive Date: 20161115
  Receipt Date: 20161115
  Transmission Date: 20170207
  Serious: Yes (Other)
  Sender: FDA-Public Use
  Company Number: 2016HINSPO0572

PATIENT

DRUGS (1)
  1. LEVETIRACETAM (LEVETIRACETAM) UNKNOWN [Suspect]
     Active Substance: LEVETIRACETAM
     Indication: PRODUCT USED FOR UNKNOWN INDICATION

REACTIONS (3)
  - Aggression [None]
  - Suicide attempt [None]
  - Intentional self-injury [None]
